FAERS Safety Report 5150580-6 (Version None)
Quarter: 2006Q4

REPORT INFORMATION
  Report Type: 
  Country: None (occurrence: None)
  Receive Date: 20061110
  Receipt Date: 20061110
  Transmission Date: 20070319
  Serious: No
  Sender: FDA-Public Use
  Company Number: None

PATIENT
  Sex: Female
  Weight: 113.3993 kg

DRUGS (1)
  1. EQUATE PAIN RELIEVER    500MG       EQUATE/WALMART [Suspect]
     Indication: BACK PAIN
     Dosage: 500MG   6-8 DAILY   PO
     Route: 048
     Dates: start: 20061001, end: 20061109

REACTIONS (3)
  - PHARMACEUTICAL PRODUCT COMPLAINT [None]
  - POOR QUALITY DRUG ADMINISTERED [None]
  - STOMACH DISCOMFORT [None]
